FAERS Safety Report 7292183-3 (Version None)
Quarter: 2011Q1

REPORT INFORMATION
  Report Type: 
  Country: None (occurrence: None)
  Receive Date: 20110215
  Receipt Date: 20110202
  Transmission Date: 20110831
  Serious: No
  Sender: FDA-Public Use
  Company Number: US-BIOGENIDEC-2011BI004917

PATIENT
  Age: 54 Year
  Sex: Female

DRUGS (1)
  1. TYSABRI [Suspect]
     Indication: MULTIPLE SCLEROSIS
     Route: 042
     Dates: start: 20101004

REACTIONS (11)
  - DIZZINESS [None]
  - STRESS [None]
  - CONTUSION [None]
  - EXCORIATION [None]
  - CONFUSIONAL STATE [None]
  - EMOTIONAL DISTRESS [None]
  - BACK PAIN [None]
  - LOSS OF CONSCIOUSNESS [None]
  - FALL [None]
  - PAIN [None]
  - SCRATCH [None]
